FAERS Safety Report 9174133 (Version 1)
Quarter: 2013Q1

REPORT INFORMATION
  Report Type: Spontaneous
  Country: US (occurrence: None)
  Receive Date: 20130314
  Receipt Date: 20130314
  Transmission Date: 20140127
  Serious: Yes (Other)
  Sender: FDA-Public Use
  Company Number: 13-01085

PATIENT
  Age: 17 Year
  Sex: Male
  Weight: 109.77 kg

DRUGS (1)
  1. ASTHMANEFRIN INHALATION SOLUTION, 2.25% [Suspect]
     Indication: DYSPNOEA
     Dosage: 1 VIAL, ONCE, 054 ROUTE
     Dates: start: 201303

REACTIONS (2)
  - Tachycardia [None]
  - Hypertension [None]
